FAERS Safety Report 25147505 (Version 1)
Quarter: 2025Q2

REPORT INFORMATION
  Report Type: Spontaneous
  Country: GB (occurrence: GB)
  Receive Date: 20250402
  Receipt Date: 20250402
  Transmission Date: 20250716
  Serious: Yes (Death)
  Sender: ABBVIE
  Company Number: GB-PFIZER INC-202500067976

PATIENT

DRUGS (1)
  1. AVIBACTAM\AZTREONAM [Suspect]
     Active Substance: AVIBACTAM\AZTREONAM
     Indication: Bacterial infection
     Dosage: 2 G, 4X/DAY (1.5G/0.5G EVERY 6 HOURS)
     Route: 065

REACTIONS (1)
  - Aplastic anaemia [Fatal]
